FAERS Safety Report 10109900 (Version 1)
Quarter: 2014Q2

REPORT INFORMATION
  Report Type: Report from Study
  Country: FR (occurrence: FR)
  Receive Date: 20140425
  Receipt Date: 20140425
  Transmission Date: 20141212
  Serious: Yes (Death, Hospitalization)
  Sender: FDA-Public Use
  Company Number: FR-SA-2014SA053235

PATIENT
  Age: 64 Year
  Sex: Male
  Weight: 55 kg

DRUGS (6)
  1. CABAZITAXEL [Suspect]
     Indication: PROSTATE CANCER
     Route: 042
     Dates: start: 20131213, end: 20140214
  2. STUDY MEDICATION NOT GIVEN [Suspect]
     Indication: PROSTATE CANCER
  3. MORPHINE [Concomitant]
     Indication: PAIN
     Dosage: VIA PUMP
     Dates: start: 20131129, end: 20140320
  4. SOLUMEDROL [Concomitant]
     Indication: PAIN
     Route: 042
     Dates: start: 20140124, end: 20140317
  5. DOLIPRANE [Concomitant]
     Indication: PAIN
     Route: 048
     Dates: start: 20140308, end: 20140330
  6. FORLAX [Concomitant]
     Indication: CONSTIPATION PROPHYLAXIS
     Route: 048
     Dates: start: 20140308, end: 20140330

REACTIONS (2)
  - Respiratory failure [Fatal]
  - Respiratory tract infection [Fatal]
